FAERS Safety Report 21026297 (Version 1)
Quarter: 2022Q2

REPORT INFORMATION
  Report Type: Spontaneous
  Country: US (occurrence: None)
  Receive Date: 20220629
  Receipt Date: 20220629
  Transmission Date: 20220721
  Serious: Yes (Hospitalization)
  Sender: FDA-Public Use
  Company Number: None

PATIENT
  Sex: Male

DRUGS (9)
  1. WELIREG [Suspect]
     Active Substance: BELZUTIFAN
     Indication: Renal cancer
     Dosage: FREQUENCY : DAILY;?
     Route: 048
  2. GABAPENTIN [Concomitant]
     Active Substance: GABAPENTIN
  3. ELIQUIS [Concomitant]
  4. TUMS [Concomitant]
  5. VALACYCLOVIR [Concomitant]
  6. TYLENOL [Concomitant]
     Active Substance: ACETAMINOPHEN
  7. TRAMADOL [Concomitant]
  8. PANTOPRAZOLE [Concomitant]
  9. ONDANSETRON [Concomitant]

REACTIONS (3)
  - Oxygen saturation decreased [None]
  - Anaemia [None]
  - Therapy interrupted [None]
